APPROVED DRUG PRODUCT: DICLOFENAC SODIUM
Active Ingredient: DICLOFENAC SODIUM
Strength: 75MG
Dosage Form/Route: TABLET, DELAYED RELEASE;ORAL
Application: A074514 | Product #002 | TE Code: AB
Applicant: ACTAVIS ELIZABETH LLC
Approved: Mar 26, 1996 | RLD: No | RS: No | Type: RX